FAERS Safety Report 4914115-2 (Version None)
Quarter: 2006Q1

REPORT INFORMATION
  Report Type: 
  Country: None (occurrence: None)
  Receive Date: 20060210
  Receipt Date: 20060130
  Transmission Date: 20060701
  Serious: Yes (Other)
  Sender: FDA-Public Use
  Company Number: 2006005541

PATIENT
  Age: 87 Year
  Sex: Male
  Weight: 65.7716 kg

DRUGS (6)
  1. XALATAN [Suspect]
     Indication: GLAUCOMA
     Dosage: 2 DROP (1 DROP, DAILY INTERVAL: EVERY NIGHT), OPHTHALMIC
     Route: 047
     Dates: start: 20030101
  2. LEVOTHYROXINE SODIUM [Concomitant]
  3. OXYCODONE HCL [Concomitant]
  4. PRILOSEC [Concomitant]
  5. HYDROCODONE BITARTRATE [Concomitant]
  6. ZOMETA [Concomitant]

REACTIONS (3)
  - BONE SCAN ABNORMAL [None]
  - CIRCUMSTANCE OR INFORMATION CAPABLE OF LEADING TO MEDICATION ERROR [None]
  - TUMOUR INVASION [None]
